FAERS Safety Report 7015951-1 (Version None)
Quarter: 2010Q3

REPORT INFORMATION
  Report Type: 
  Country: None (occurrence: None)
  Receive Date: 20100927
  Receipt Date: 20100601
  Transmission Date: 20110219
  Serious: No
  Sender: FDA-Public Use
  Company Number: US-ASTRAZENECA-2010SE25127

PATIENT
  Sex: Female

DRUGS (8)
  1. ARIMIDEX [Suspect]
     Indication: BREAST CANCER
     Route: 048
     Dates: start: 20080101, end: 20100518
  2. ASPIRIN [Concomitant]
  3. XANAX [Concomitant]
     Indication: NERVOUSNESS
  4. COLESTIPOL HYDROCHLORIDE [Concomitant]
  5. CALCIUM [Concomitant]
  6. PROPRANOLOL [Concomitant]
     Indication: DYSTONIA
  7. PROPRANOLOL [Concomitant]
     Indication: HYPERTENSION
  8. METAMUCIL-2 [Concomitant]

REACTIONS (10)
  - ARTHRALGIA [None]
  - BLOOD PRESSURE INCREASED [None]
  - DIZZINESS [None]
  - ELECTROCARDIOGRAM LOW VOLTAGE [None]
  - HOT FLUSH [None]
  - JOINT LOCK [None]
  - JOINT STIFFNESS [None]
  - MUSCULOSKELETAL STIFFNESS [None]
  - NAUSEA [None]
  - PAIN IN EXTREMITY [None]
